FAERS Safety Report 7639887-8 (Version None)
Quarter: 2011Q3

REPORT INFORMATION
  Report Type: 
  Country: None (occurrence: None)
  Receive Date: 20110727
  Receipt Date: 20110719
  Transmission Date: 20111222
  Serious: Yes (Other)
  Sender: FDA-Public Use
  Company Number: CA-US-EMD SERONO, INC.-7026464

PATIENT
  Sex: Female

DRUGS (2)
  1. REBIF [Suspect]
     Indication: RELAPSING-REMITTING MULTIPLE SCLEROSIS
     Route: 058
     Dates: start: 20091005, end: 20100415
  2. REBIF [Suspect]
     Dates: start: 20101101

REACTIONS (3)
  - BLINDNESS [None]
  - HEADACHE [None]
  - BLINDNESS TRANSIENT [None]
